FAERS Safety Report 5897155-9 (Version None)
Quarter: 2008Q3

REPORT INFORMATION
  Report Type: 
  Country: None (occurrence: None)
  Receive Date: 20080924
  Receipt Date: 20080414
  Transmission Date: 20090109
  Serious: Yes (Other)
  Sender: FDA-Public Use
  Company Number: US-ASTRAZENECA-2008UW07716

PATIENT
  Sex: Female

DRUGS (2)
  1. SEROQUEL XR [Suspect]
     Dosage: 300 MG TITRATED FROM SAMPLE PACK
     Route: 048
  2. DEPAKOTE [Concomitant]

REACTIONS (1)
  - OEDEMA PERIPHERAL [None]
